FAERS Safety Report 6989507-0 (Version None)
Quarter: 2010Q3

REPORT INFORMATION
  Report Type: 
  Country: None (occurrence: None)
  Receive Date: 20100916
  Receipt Date: 20091214
  Transmission Date: 20110219
  Serious: Yes (Other)
  Sender: FDA-Public Use
  Company Number: US-PFIZER INC-2009309920

PATIENT
  Sex: Female

DRUGS (4)
  1. LYRICA [Suspect]
  2. NEURONTIN [Suspect]
  3. LORTAB [Suspect]
  4. MILNACIPRAN [Suspect]
     Indication: PAIN

REACTIONS (9)
  - EYE SWELLING [None]
  - FEELING ABNORMAL [None]
  - HEPATITIS C [None]
  - IRRITABILITY [None]
  - OEDEMA MOUTH [None]
  - OEDEMA PERIPHERAL [None]
  - PAIN [None]
  - PHARYNGEAL OEDEMA [None]
  - TENSION [None]
